FAERS Safety Report 10557723 (Version 1)
Quarter: 2014Q4

REPORT INFORMATION
  Report Type: Spontaneous
  Country: US (occurrence: US)
  Receive Date: 20141031
  Receipt Date: 20141031
  Transmission Date: 20150529
  Serious: No
  Sender: FDA-Public Use
  Company Number: US-009507513-1410USA015708

PATIENT
  Age: 24 Year
  Sex: Female
  Weight: 89.8 kg

DRUGS (1)
  1. NEXPLANON [Suspect]
     Active Substance: ETONOGESTREL
     Indication: CONTRACEPTION
     Dosage: UNK, 3 YEAR IMPLANT, IN LEFT ARM
     Route: 059
     Dates: start: 20130911

REACTIONS (2)
  - Implant site discolouration [Unknown]
  - Device dislocation [Unknown]

NARRATIVE: CASE EVENT DATE: 20141015
